FAERS Safety Report 5023256-3 (Version None)
Quarter: 2006Q2

REPORT INFORMATION
  Report Type: 
  Country: None (occurrence: None)
  Receive Date: 20060606
  Receipt Date: 20060526
  Transmission Date: 20061013
  Serious: Yes (Death, Hospitalization, Other)
  Sender: FDA-Public Use
  Company Number: JP200605002814

PATIENT
  Age: 58 Year
  Sex: Male

DRUGS (10)
  1. GEMZAR [Suspect]
     Indication: PANCREATIC CARCINOMA
     Dosage: 1200 MG, OTHER, INTRAVENOUS
     Route: 042
     Dates: start: 20060426, end: 20060426
  2. KYTRIL FOR INFUSION (GRANISETRON HYDROCHLORIDE) INFUSION [Concomitant]
  3. DECADRON (DEXAMETHASONE SODIUM PHOSPHATE) INJECTION [Concomitant]
  4. RINDERON (BETAMETHASONE) TABLET [Concomitant]
  5. ETODOLAC [Concomitant]
  6. PARIET (RABEPRAZOLE SODIUM) TABLET [Concomitant]
  7. MUCOSTA (REBAMIPIDE) [Concomitant]
  8. THEOLONG (THEOPHYLLINE) [Concomitant]
  9. SPIROPENT (CLENBUTEROL HYDROCHLORIDE) [Concomitant]
  10. OXYCONTIN [Concomitant]

REACTIONS (7)
  - ACTIVITIES OF DAILY LIVING IMPAIRED [None]
  - GASTRIC ULCER HAEMORRHAGE [None]
  - GUILLAIN-BARRE SYNDROME [None]
  - PERIPHERAL MOTOR NEUROPATHY [None]
  - PLATELET COUNT DECREASED [None]
  - RESPIRATORY FAILURE [None]
  - TUMOUR HAEMORRHAGE [None]
